FAERS Safety Report 5076309-8 (Version None)
Quarter: 2006Q3

REPORT INFORMATION
  Report Type: 
  Country: None (occurrence: None)
  Receive Date: 20060804
  Receipt Date: 20060724
  Transmission Date: 20061208
  Serious: Yes (Other)
  Sender: FDA-Public Use
  Company Number: CA-2006-020809

PATIENT
  Age: 11 Year
  Sex: Female

DRUGS (1)
  1. BETASERON [Suspect]
     Indication: RELAPSING-REMITTING MULTIPLE SCLEROSIS
     Dosage: 6 MIU, SUBCUTANEOUS
     Route: 058
     Dates: start: 20050208

REACTIONS (5)
  - DYSGEUSIA [None]
  - DYSPNOEA [None]
  - LOSS OF CONSCIOUSNESS [None]
  - PARAESTHESIA ORAL [None]
  - POST PROCEDURAL COMPLICATION [None]
